FAERS Safety Report 7459927-9 (Version None)
Quarter: 2011Q2

REPORT INFORMATION
  Report Type: 
  Country: None (occurrence: None)
  Receive Date: 20110505
  Receipt Date: 20110401
  Transmission Date: 20111010
  Serious: No
  Sender: FDA-Public Use
  Company Number: US-JNJFOC-20110403845

PATIENT
  Sex: Male
  Weight: 129.28 kg

DRUGS (16)
  1. FENTANYL-100 [Suspect]
     Route: 062
  2. FENTANYL-100 [Suspect]
     Route: 062
  3. KLONOPIN [Concomitant]
     Indication: ANXIETY
     Route: 048
  4. FENTANYL-100 [Suspect]
     Indication: FIBROMYALGIA
     Route: 062
  5. FENTANYL-100 [Suspect]
     Route: 062
  6. FENTANYL-100 [Suspect]
     Route: 062
  7. FUROSEMIDE [Concomitant]
     Indication: OEDEMA
     Route: 048
  8. FENTANYL-100 [Suspect]
     Route: 062
  9. WELLBUTRIN [Concomitant]
     Indication: DEPRESSION
     Route: 048
  10. FENTANYL-100 [Suspect]
     Indication: NEUROPATHY PERIPHERAL
     Route: 062
  11. TRAZODONE HCL [Concomitant]
     Indication: SLEEP DISORDER
     Route: 048
  12. FLONASE [Concomitant]
     Indication: ASTHMA
     Route: 045
  13. FENTANYL-100 [Suspect]
     Route: 062
  14. IBUPROFEN [Concomitant]
     Indication: PAIN
     Route: 048
  15. MORPHINE [Concomitant]
     Indication: BREAKTHROUGH PAIN
     Route: 048
  16. ALBUTEROL [Concomitant]
     Dosage: 2 PUFFS 4 TIMES DAILY
     Route: 065

REACTIONS (6)
  - FATIGUE [None]
  - DEPRESSION [None]
  - WRONG TECHNIQUE IN DRUG USAGE PROCESS [None]
  - NAUSEA [None]
  - FEELING ABNORMAL [None]
  - THERAPEUTIC RESPONSE DECREASED [None]
